FAERS Safety Report 13170378 (Version 1)
Quarter: 2017Q1

REPORT INFORMATION
  Report Type: Spontaneous
  Country: FR (occurrence: FR)
  Receive Date: 20170131
  Receipt Date: 20170131
  Transmission Date: 20170428
  Serious: Yes (Death)
  Sender: FDA-Public Use
  Company Number: FR-NORTHSTAR HEALTHCARE HOLDINGS-FR-2017NSR000096

PATIENT
  Age: 69 Year
  Sex: Female
  Weight: 45 kg

DRUGS (1)
  1. TRAMADOL HYDROCHLORIDE. [Suspect]
     Active Substance: TRAMADOL HYDROCHLORIDE
     Indication: PRODUCT USED FOR UNKNOWN INDICATION
     Dosage: 50 MG, 3-4 TIMES DAILY

REACTIONS (15)
  - Hypoglycaemia [Fatal]
  - Toxicity to various agents [Fatal]
  - Septic shock [Fatal]
  - Multiple organ dysfunction syndrome [Fatal]
  - Liver disorder [Fatal]
  - Overdose [Fatal]
  - Hypoxia [Fatal]
  - Renal disorder [Fatal]
  - Nervous system disorder [Fatal]
  - Cardio-respiratory arrest [Fatal]
  - Hypotension [Fatal]
  - Cardiogenic shock [Fatal]
  - Supraventricular tachycardia [Fatal]
  - Asthenia [Fatal]
  - Somnolence [Fatal]
